FAERS Safety Report 12429554 (Version 1)
Quarter: 2016Q2

REPORT INFORMATION
  Report Type: Report from Study
  Country: US (occurrence: US)
  Receive Date: 20160602
  Receipt Date: 20160602
  Transmission Date: 20160815
  Serious: Yes (Hospitalization)
  Sender: FDA-Public Use
  Company Number: US-EXELIXIS-CABO-16006187

PATIENT
  Age: 41 Year
  Sex: Male

DRUGS (3)
  1. COMETRIQ [Suspect]
     Active Substance: CABOZANTINIB S-MALATE
     Indication: RENAL CANCER
     Dosage: 60 MG, QD
     Route: 048
     Dates: start: 201603
  2. OXYCODONE [Concomitant]
     Active Substance: OXYCODONE
  3. MORPHINE [Concomitant]
     Active Substance: MORPHINE

REACTIONS (7)
  - Systemic inflammatory response syndrome [Unknown]
  - Febrile neutropenia [Unknown]
  - Lactic acidosis [Unknown]
  - Off label use [Unknown]
  - Dehydration [Unknown]
  - Diarrhoea [Unknown]
  - Decreased appetite [Unknown]

NARRATIVE: CASE EVENT DATE: 20160427
